FAERS Safety Report 16680055 (Version 5)
Quarter: 2020Q1

REPORT INFORMATION
  Report Type: Report from Study
  Country: US (occurrence: US)
  Receive Date: 20190807
  Receipt Date: 20200303
  Transmission Date: 20200409
  Serious: Yes (Death, Hospitalization)
  Sender: FDA-Public Use
  Company Number: US-ACTELION-A-NJ2019-190057

PATIENT
  Age: 59 Year
  Sex: Female
  Weight: 110.66 kg

DRUGS (8)
  1. UPTRAVI [Suspect]
     Active Substance: SELEXIPAG
     Dosage: 1200 MCG, BID
     Route: 048
  2. UPTRAVI [Suspect]
     Active Substance: SELEXIPAG
     Dosage: UNK
     Route: 048
  3. UPTRAVI [Suspect]
     Active Substance: SELEXIPAG
     Dosage: 1200 MCG AM/1400 MCG PM
     Route: 048
  4. LETAIRIS [Concomitant]
     Active Substance: AMBRISENTAN
  5. ADCIRCA [Suspect]
     Active Substance: TADALAFIL
     Indication: PULMONARY ARTERIAL HYPERTENSION
     Dosage: 20 MG, BID
     Route: 065
     Dates: start: 201903
  6. UPTRAVI [Suspect]
     Active Substance: SELEXIPAG
     Dosage: 800 MCG, BID
     Route: 048
  7. UPTRAVI [Suspect]
     Active Substance: SELEXIPAG
     Indication: PULMONARY HYPERTENSION
     Dosage: 1000 MCG, BID
     Route: 048
     Dates: start: 201811
  8. XARELTO [Concomitant]
     Active Substance: RIVAROXABAN

REACTIONS (16)
  - Death [Fatal]
  - Hospitalisation [Unknown]
  - Pulmonary arterial hypertension [Recovering/Resolving]
  - Cardiac failure [Recovering/Resolving]
  - Diarrhoea [Unknown]
  - Syncope [Unknown]
  - Loss of consciousness [Unknown]
  - Muscle spasms [Unknown]
  - Rehabilitation therapy [Unknown]
  - Oxygen saturation decreased [Unknown]
  - Headache [Unknown]
  - Head injury [Unknown]
  - Chronic respiratory failure [Recovering/Resolving]
  - Unresponsive to stimuli [Unknown]
  - Fluid overload [Unknown]
  - Fall [Unknown]

NARRATIVE: CASE EVENT DATE: 20191205
